FAERS Safety Report 4513057-4 (Version None)
Quarter: 2004Q4

REPORT INFORMATION
  Report Type: 
  Country: None (occurrence: None)
  Receive Date: 20041124
  Receipt Date: 20041124
  Transmission Date: 20050328
  Serious: No
  Sender: FDA-Public Use
  Company Number: None

PATIENT
  Sex: Female
  Weight: 16 kg

DRUGS (5)
  1. CYCLOPHOSPHAMIDE [Suspect]
     Indication: RHABDOMYOSARCOMA
     Dosage: C: 2.2 GM/M2
     Dates: start: 20030620, end: 20040119
  2. ACTINOMYCIN-D (A) [Suspect]
     Dosage: A: 0.045MG/KG
     Dates: start: 20030620, end: 20040119
  3. TOPOTECAN (T) [Suspect]
     Dosage: T: 0.75MG/M2
  4. VINCRISTINE [Suspect]
     Dosage: V: 1.5MG/M2
  5. RADIATION THERAPY [Concomitant]

REACTIONS (2)
  - DISEASE RECURRENCE [None]
  - PLATELET COUNT DECREASED [None]
